FAERS Safety Report 17980455 (Version 4)
Quarter: 2021Q1

REPORT INFORMATION
  Report Type: Report from Study
  Country: None (occurrence: FR)
  Receive Date: 20200703
  Receipt Date: 20210214
  Transmission Date: 20210419
  Serious: Yes (Death, Other)
  Sender: FDA-Public Use
  Company Number: FR-ABBVIE-19K-056-3193504-00

PATIENT
  Age: 74 Year
  Sex: Male
  Weight: 78 kg

DRUGS (20)
  1. ALLOPURINOL. [Concomitant]
     Active Substance: ALLOPURINOL
     Indication: GOUT
     Dates: start: 2016
  2. VALACICLOVIR [Concomitant]
     Active Substance: VALACYCLOVIR HYDROCHLORIDE
     Indication: ANTIVIRAL PROPHYLAXIS
     Route: 048
     Dates: start: 20191118
  3. HIZENTRA [Suspect]
     Active Substance: HUMAN IMMUNOGLOBULIN G
     Indication: HYPOGAMMAGLOBULINAEMIA
     Route: 065
     Dates: start: 20191203
  4. ALLOPURINOL. [Concomitant]
     Active Substance: ALLOPURINOL
     Indication: PROPHYLAXIS
  5. DEXERYL [Concomitant]
     Indication: SKIN PLAQUE
     Dates: start: 20200124, end: 20200124
  6. VENCLYXTO [Suspect]
     Active Substance: VENETOCLAX
     Indication: CHRONIC LYMPHOCYTIC LEUKAEMIA
     Route: 048
     Dates: start: 20191028, end: 20191104
  7. VENCLYXTO [Suspect]
     Active Substance: VENETOCLAX
     Route: 048
     Dates: start: 20191119, end: 20191125
  8. DOLIPRANE [Concomitant]
     Active Substance: ACETAMINOPHEN
     Indication: PANCREATITIS ACUTE
     Dates: start: 20200514, end: 20200514
  9. VENCLYXTO [Suspect]
     Active Substance: VENETOCLAX
     Route: 048
     Dates: start: 20191126
  10. PROCTOLOG [Concomitant]
     Active Substance: TRIMEBUTINE
     Indication: HAEMORRHOIDS
     Dates: start: 20200124, end: 20200224
  11. VENCLYXTO [Suspect]
     Active Substance: VENETOCLAX
     Route: 048
     Dates: start: 20191105, end: 20191111
  12. VENCLYXTO [Suspect]
     Active Substance: VENETOCLAX
     Route: 048
     Dates: start: 20191112, end: 20191118
  13. PRAVASTATINE [Concomitant]
     Active Substance: PRAVASTATIN
     Indication: HYPERCHOLESTEROLAEMIA
     Dates: start: 2018
  14. AMLOR [Concomitant]
     Active Substance: AMLODIPINE BESYLATE
     Indication: HYPERTENSION
     Dates: start: 2019
  15. BIPRETERAX [Concomitant]
     Active Substance: INDAPAMIDE\PERINDOPRIL
     Indication: HYPERTENSION
     Dates: start: 2018
  16. PRIVIGEN [Concomitant]
     Active Substance: HUMAN IMMUNOGLOBULIN G
     Indication: HYPOGAMMAGLOBULINAEMIA
     Dates: start: 20191028, end: 20191126
  17. DIPROSONE [Concomitant]
     Active Substance: BETAMETHASONE DIPROPIONATE
     Indication: ERYTHEMA
     Dates: start: 20200124, end: 20200124
  18. INTRAIT OF INDIAN CHESTNUT [Concomitant]
     Indication: HAEMORRHOIDS
     Dates: start: 20200124, end: 20200224
  19. MORPHINE [Concomitant]
     Active Substance: MORPHINE
     Indication: PANCREATITIS ACUTE
     Dates: start: 20200514, end: 20200515
  20. OXYNORMORO [Concomitant]
     Active Substance: OXYCODONE HYDROCHLORIDE
     Indication: PANCREATITIS ACUTE
     Dates: start: 20200514, end: 20200514

REACTIONS (10)
  - Hypocalcaemia [Recovered/Resolved]
  - Contraindicated product administered [Unknown]
  - Hyperkalaemia [Recovered/Resolved]
  - Hyperuricaemia [Recovered/Resolved]
  - Skin plaque [Recovered/Resolved]
  - Pancreatitis acute [Fatal]
  - Rhinitis [Unknown]
  - Cough [Recovered/Resolved]
  - Dermatitis allergic [Recovered/Resolved]
  - Haemorrhoids [Recovered/Resolved]

NARRATIVE: CASE EVENT DATE: 20191028
